FAERS Safety Report 10307155 (Version 1)
Quarter: 2014Q3

REPORT INFORMATION
  Report Type: Spontaneous
  Country: US (occurrence: US)
  Receive Date: 20140716
  Receipt Date: 20140716
  Transmission Date: 20150326
  Serious: No
  Sender: FDA-Public Use
  Company Number: US-009507513-1407USA006349

PATIENT
  Sex: Female

DRUGS (3)
  1. DULERA [Suspect]
     Active Substance: FORMOTEROL FUMARATE DIHYDRATE\MOMETASONE FUROATE
     Indication: CHRONIC OBSTRUCTIVE PULMONARY DISEASE
     Dosage: STRENGTH: 100/5 MCRG, BID
     Route: 055
  2. LIVALO [Concomitant]
     Active Substance: PITAVASTATIN CALCIUM
  3. DULERA [Suspect]
     Active Substance: FORMOTEROL FUMARATE DIHYDRATE\MOMETASONE FUROATE
     Indication: ASTHMA

REACTIONS (3)
  - Muscle spasms [Not Recovered/Not Resolved]
  - Weight increased [Not Recovered/Not Resolved]
  - Ocular hyperaemia [Not Recovered/Not Resolved]
